FAERS Safety Report 6571067-X (Version None)
Quarter: 2010Q1

REPORT INFORMATION
  Report Type: 
  Country: None (occurrence: None)
  Receive Date: 20100204
  Receipt Date: 20100129
  Transmission Date: 20100710
  Serious: Yes (Other)
  Sender: FDA-Public Use
  Company Number: AU-ABBOTT-10P-008-0622936-00

PATIENT
  Sex: Male

DRUGS (4)
  1. HUMIRA [Suspect]
     Indication: OFF LABEL USE
     Dosage: INDUCTION DOSE
     Dates: start: 20100101
  2. IMURAN [Suspect]
     Indication: DRUG USE FOR UNKNOWN INDICATION
  3. IMURAN [Suspect]
  4. THIOPURINE [Concomitant]
     Indication: DRUG USE FOR UNKNOWN INDICATION

REACTIONS (2)
  - LIPASE INCREASED [None]
  - PANCREATITIS [None]
